FAERS Safety Report 4994635-5 (Version None)
Quarter: 2006Q2

REPORT INFORMATION
  Report Type: 
  Country: None (occurrence: None)
  Receive Date: 20060505
  Receipt Date: 20050823
  Transmission Date: 20061013
  Serious: Yes (Disabling)
  Sender: FDA-Public Use
  Company Number: US-MERCK-0508USA03954

PATIENT
  Age: 37 Year
  Sex: Female
  Weight: 77 kg

DRUGS (2)
  1. VIOXX [Suspect]
     Indication: ARTHRITIS
     Route: 048
     Dates: start: 20000301, end: 20040101
  2. VIOXX [Suspect]
     Route: 048
     Dates: start: 20000301, end: 20040101

REACTIONS (8)
  - ASTHENIA [None]
  - CEREBROVASCULAR ACCIDENT [None]
  - CHEST PAIN [None]
  - CONVULSION [None]
  - HYPERTENSION [None]
  - MIGRAINE [None]
  - RENAL DISORDER [None]
  - STOMACH DISCOMFORT [None]
